FAERS Safety Report 5676119-4 (Version None)
Quarter: 2008Q1

REPORT INFORMATION
  Report Type: 
  Country: None (occurrence: None)
  Receive Date: 20080321
  Receipt Date: 20080312
  Transmission Date: 20080703
  Serious: Yes (Death, Life-Threatening, Hospitalization, Disabling)
  Sender: FDA-Public Use
  Company Number: GB-TEVA-162500ISR

PATIENT
  Age: 67 Year
  Sex: Male

DRUGS (2)
  1. DOXYCYCLINE [Suspect]
     Route: 048
  2. RIMONABANT [Interacting]
     Indication: WEIGHT DECREASED
     Route: 048

REACTIONS (9)
  - COUGH [None]
  - DERMATITIS EXFOLIATIVE [None]
  - DRUG INTERACTION [None]
  - DYSPNOEA [None]
  - HYPOTENSION [None]
  - PNEUMONIA [None]
  - PYREXIA [None]
  - RENAL FAILURE ACUTE [None]
  - TOXIC SHOCK SYNDROME [None]
